FAERS Safety Report 8702027 (Version 4)
Quarter: 2013Q2

REPORT INFORMATION
  Report Type: Spontaneous
  Country: CA (occurrence: CA)
  Receive Date: 20120803
  Receipt Date: 20130402
  Transmission Date: 20140414
  Serious: Yes (Hospitalization, Other)
  Sender: FDA-Public Use
  Company Number: CA-JNJFOC-20120713719

PATIENT
  Sex: Female
  Weight: 90.72 kg

DRUGS (11)
  1. NUCYNTA CR [Suspect]
     Indication: HEADACHE
     Dosage: 1 TABLET 2 TIMES A DAY FOR 7X10 DAYS WITH A PROVISION FOR 50 MG BID TITRATION EVERY 5 DAYS
     Route: 048
     Dates: start: 20120615, end: 20120629
  2. NUCYNTA CR [Suspect]
     Indication: HEADACHE
     Dosage: 2 TIMES A DAY
     Route: 048
     Dates: start: 20120615, end: 20120709
  3. DILAUDID [Suspect]
     Indication: PRODUCT USED FOR UNKNOWN INDICATION
     Dosage: 2 TABLETS THRICE A DAY
     Route: 065
  4. DILAUDID [Suspect]
     Indication: PRODUCT USED FOR UNKNOWN INDICATION
     Dosage: TWICE A DAY
     Route: 065
  5. OXYBUTYNIN S [Concomitant]
     Route: 065
  6. CIPRALEX [Concomitant]
     Dosage: PER DAY
     Route: 065
  7. KEPPRA [Concomitant]
     Indication: CONVULSION PROPHYLAXIS
     Dosage: TWICE A DAY
     Route: 065
  8. CLONAZEPAM [Concomitant]
     Dosage: 3 PER DAY
     Route: 065
  9. CLONAZEPAM [Concomitant]
     Dosage: TWICE A DAY
     Route: 065
  10. NEXIUM [Concomitant]
     Dosage: DOSE 40
     Route: 065
  11. SYMBICORT [Concomitant]
     Route: 065

REACTIONS (7)
  - Overdose [Unknown]
  - Serotonin syndrome [Unknown]
  - Depressed level of consciousness [Recovering/Resolving]
  - Confusional state [Recovered/Resolved]
  - Delirium [Unknown]
  - Convulsion [Unknown]
  - Blood creatine phosphokinase increased [Unknown]
